FAERS Safety Report 7357693-9 (Version None)
Quarter: 2011Q1

REPORT INFORMATION
  Report Type: 
  Country: None (occurrence: None)
  Receive Date: 20110317
  Receipt Date: 20110307
  Transmission Date: 20110831
  Serious: Yes (Hospitalization)
  Sender: FDA-Public Use
  Company Number: US-MYLANLABS-2011S1002481

PATIENT
  Age: 77 Year
  Sex: Female

DRUGS (4)
  1. AMOXICILLIN [Suspect]
  2. AGGRENOX [Concomitant]
     Route: 048
  3. MIRTAZAPINE [Suspect]
     Route: 048
     Dates: start: 20110202, end: 20110204
  4. LISINOPRIL [Concomitant]
     Route: 048

REACTIONS (2)
  - HYPERSENSITIVITY [None]
  - TYPE IV HYPERSENSITIVITY REACTION [None]
